FAERS Safety Report 5377714-2 (Version None)
Quarter: 2007Q3

REPORT INFORMATION
  Report Type: 
  Country: None (occurrence: None)
  Receive Date: 20070703
  Receipt Date: 20070622
  Transmission Date: 20080115
  Serious: Yes (Disabling)
  Sender: FDA-Public Use
  Company Number: AU-BOEHRINGER INGELHEIM PHARMACEUTICALS, INC.-2007-BP-16625AU

PATIENT
  Sex: Female
  Weight: 65 kg

DRUGS (8)
  1. SPIRIVA [Suspect]
     Indication: CHRONIC OBSTRUCTIVE PULMONARY DISEASE
     Dates: start: 20070420, end: 20070518
  2. SPIRIVA [Suspect]
     Indication: ASTHMA
  3. SERETIDE [Concomitant]
     Dosage: 1000/100 MCG/MCG
     Route: 048
     Dates: start: 20070420
  4. AMOXIL [Concomitant]
     Route: 048
     Dates: start: 20070420, end: 20070426
  5. PREDNISOLONE [Concomitant]
     Route: 048
     Dates: start: 20070422, end: 20070430
  6. TRAMAL SR [Concomitant]
     Route: 048
     Dates: start: 20070509
  7. MODURETIC 5-50 [Concomitant]
     Route: 048
  8. PRAVACHOL [Concomitant]
     Route: 048

REACTIONS (3)
  - CHAPPED LIPS [None]
  - DRY MOUTH [None]
  - STOMATITIS [None]
